FAERS Safety Report 5642011-4 (Version None)
Quarter: 2008Q1

REPORT INFORMATION
  Report Type: 
  Country: None (occurrence: None)
  Receive Date: 20080131
  Receipt Date: 20071016
  Transmission Date: 20080703
  Serious: No
  Sender: FDA-Public Use
  Company Number: 163-21880-07100851

PATIENT
  Age: 72 Year
  Sex: Female

DRUGS (12)
  1. REVLIMID [Suspect]
     Indication: MULTIPLE MYELOMA
     Dosage: 5 MG, DAILY FOR 21 DAYS, THEN 7 DAYS OFF, ORAL
     Route: 048
     Dates: start: 20070921
  2. LEVOXYL [Concomitant]
  3. LORAZEPAM [Concomitant]
  4. OXYCODONE HCL [Concomitant]
  5. PROTONIX [Concomitant]
  6. PENTAMIDINE (PENTAMIDINE) [Concomitant]
  7. SENNA (SENNA) [Concomitant]
  8. ASPIRIN [Concomitant]
  9. CALCIUM CARBONATE (CALCIUM CARBONATE) [Concomitant]
  10. DOCUSATE SODIUM (DOCUSATE SODIUM) [Concomitant]
  11. FOLIC ACID [Concomitant]
  12. VELCADE [Concomitant]

REACTIONS (1)
  - NEUROPATHY PERIPHERAL [None]
